FAERS Safety Report 12503793 (Version 1)
Quarter: 2016Q2

REPORT INFORMATION
  Report Type: Spontaneous
  Country: US (occurrence: None)
  Receive Date: 20160627
  Receipt Date: 20160627
  Transmission Date: 20160815
  Serious: Yes (Hospitalization, Disabling)
  Sender: FDA-Public Use
  Company Number: None

PATIENT
  Age: 38 Year
  Sex: Female
  Weight: 117.94 kg

DRUGS (2)
  1. LEVAQUIN [Suspect]
     Active Substance: LEVOFLOXACIN
     Indication: LOWER RESPIRATORY TRACT INFECTION
     Route: 048
     Dates: start: 20140728, end: 20140730
  2. LEVAQUIN [Suspect]
     Active Substance: LEVOFLOXACIN
     Indication: SINUS DISORDER
     Route: 048
     Dates: start: 20140728, end: 20140730

REACTIONS (15)
  - Presyncope [None]
  - Hypoaesthesia [None]
  - Heart rate irregular [None]
  - Myalgia [None]
  - Mobility decreased [None]
  - Pruritus [None]
  - Peripheral swelling [None]
  - Vision blurred [None]
  - Autonomic neuropathy [None]
  - Postural orthostatic tachycardia syndrome [None]
  - Ventricular tachycardia [None]
  - Quality of life decreased [None]
  - Gait disturbance [None]
  - Migraine [None]
  - Vertigo [None]

NARRATIVE: CASE EVENT DATE: 20140730
